FAERS Safety Report 6202408-0 (Version None)
Quarter: 2009Q2

REPORT INFORMATION
  Report Type: 
  Country: None (occurrence: None)
  Receive Date: 20090526
  Receipt Date: 20090514
  Transmission Date: 20091009
  Serious: Yes (Hospitalization)
  Sender: FDA-Public Use
  Company Number: US-ELI_LILLY_AND_COMPANY-US200803003001

PATIENT
  Sex: Female
  Weight: 81.633 kg

DRUGS (2)
  1. ZYPREXA [Suspect]
     Dosage: 10 MG, UNK
  2. ZYPREXA [Suspect]
     Dosage: 5 MG, UNK
     Dates: start: 20011226, end: 20070409

REACTIONS (4)
  - DIABETES MELLITUS [None]
  - EYE SWELLING [None]
  - PAIN [None]
  - THROMBOSIS [None]
